FAERS Safety Report 9166718 (Version 2)
Quarter: 2013Q1

REPORT INFORMATION
  Report Type: Spontaneous
  Country: US (occurrence: US)
  Receive Date: 20130316
  Receipt Date: 20130329
  Transmission Date: 20140127
  Serious: No
  Sender: FDA-Public Use
  Company Number: US-009507513-1303USA005021

PATIENT
  Age: 65 None
  Sex: Female

DRUGS (1)
  1. DULERA [Suspect]
     Dosage: 2 PUFFS TWICE A DAY
     Route: 055
     Dates: start: 20130226

REACTIONS (5)
  - Asthenia [Not Recovered/Not Resolved]
  - Dyspnoea [Not Recovered/Not Resolved]
  - Product taste abnormal [Unknown]
  - Drug dose omission [Unknown]
  - Malaise [Not Recovered/Not Resolved]
